FAERS Safety Report 18455076 (Version 1)
Quarter: 2020Q4

REPORT INFORMATION
  Report Type: Spontaneous
  Country: US (occurrence: US)
  Receive Date: 20201102
  Receipt Date: 20201102
  Transmission Date: 20210114
  Serious: Yes (Hospitalization)
  Sender: FDA-Public Use
  Company Number: US-LUNDBECK-DKLU3023114

PATIENT
  Age: 39 Year
  Sex: Male

DRUGS (1)
  1. VIGABATRIN (TABLET) [Suspect]
     Active Substance: VIGABATRIN
     Indication: EPILEPSY
     Route: 048

REACTIONS (2)
  - Constipation [Unknown]
  - Urine output decreased [Unknown]
